FAERS Safety Report 11466935 (Version 1)
Quarter: 2015Q3

REPORT INFORMATION
  Report Type: Report from Study
  Country: JP (occurrence: JP)
  Receive Date: 20150908
  Receipt Date: 20150908
  Transmission Date: 20151125
  Serious: Yes (Hospitalization)
  Sender: FDA-Public Use
  Company Number: JP-AMGEN-JPNCT2015091645

PATIENT
  Age: 64 Year
  Sex: Male
  Weight: 64 kg

DRUGS (12)
  1. DIOVAN [Concomitant]
     Active Substance: VALSARTAN
     Dosage: UNK
     Route: 065
     Dates: end: 20140115
  2. OXYCONTIN [Concomitant]
     Active Substance: OXYCODONE HYDROCHLORIDE
     Dosage: UNK
     Route: 065
     Dates: end: 20130712
  3. CALTAN [Concomitant]
     Active Substance: CALCIUM CARBONATE
     Dosage: UNK
     Route: 065
     Dates: end: 20130721
  4. DENOSUMAB [Suspect]
     Active Substance: DENOSUMAB
     Indication: PRODUCT USED FOR UNKNOWN INDICATION
     Dosage: UNK
     Route: 065
     Dates: start: 20130705
  5. OXINORM                            /00547301/ [Concomitant]
     Dosage: UNK
     Route: 065
     Dates: end: 20140212
  6. SPIRIVA [Concomitant]
     Active Substance: TIOTROPIUM BROMIDE MONOHYDRATE
     Dosage: UNK
     Route: 065
     Dates: end: 20130729
  7. CRIZOTINIB [Suspect]
     Active Substance: CRIZOTINIB
     Indication: NON-SMALL CELL LUNG CANCER
     Dosage: 250 MG, BID
     Route: 048
     Dates: start: 20130708, end: 20130725
  8. MAGMITT [Concomitant]
     Active Substance: MAGNESIUM OXIDE
     Dosage: UNK
     Route: 065
     Dates: end: 20130804
  9. NOVAMIN                            /00013301/ [Concomitant]
     Active Substance: PROCHLORPERAZINE MALEATE
     Dosage: UNK
     Route: 065
     Dates: end: 20130716
  10. MYSLEE [Concomitant]
     Active Substance: ZOLPIDEM TARTRATE
     Dosage: UNK
     Route: 065
     Dates: end: 20140212
  11. ONEALFA [Concomitant]
     Active Substance: ALFACALCIDOL
     Dosage: UNK
     Route: 065
     Dates: end: 20131225
  12. NORVASC [Concomitant]
     Active Substance: AMLODIPINE BESYLATE
     Dosage: UNK
     Route: 065
     Dates: end: 20131206

REACTIONS (6)
  - Hypocalcaemia [Recovered/Resolved]
  - Alanine aminotransferase increased [Recovered/Resolved]
  - Blood creatinine increased [Recovering/Resolving]
  - Interstitial lung disease [Recovered/Resolved]
  - Tumour lysis syndrome [Recovered/Resolved]
  - Aspartate aminotransferase increased [Recovered/Resolved]

NARRATIVE: CASE EVENT DATE: 20130708
